FAERS Safety Report 5513574-4 (Version None)
Quarter: 2007Q4

REPORT INFORMATION
  Report Type: 
  Country: None (occurrence: None)
  Receive Date: 20071108
  Receipt Date: 20071029
  Transmission Date: 20080405
  Serious: Yes (Hospitalization)
  Sender: FDA-Public Use
  Company Number: 2006US000608

PATIENT
  Age: 47 Year
  Sex: Male

DRUGS (24)
  1. PROGRAF [Suspect]
     Indication: PROPHYLAXIS AGAINST TRANSPLANT REJECTION
     Dosage: BID, ORAL
     Route: 048
     Dates: start: 20050728
  2. MYCOPHENOLATE MOFETIL [Suspect]
     Indication: PROPHYLAXIS AGAINST TRANSPLANT REJECTION
     Dosage: 1000 MG, BID, ORAL
     Route: 048
     Dates: start: 20050727, end: 20051101
  3. MEDROL [Suspect]
     Indication: PROPHYLAXIS AGAINST TRANSPLANT REJECTION
     Dosage: 4 MG, UID/QD, ORAL
     Route: 048
     Dates: start: 20050728
  4. RAPAMUNE [Suspect]
     Indication: DRUG USE FOR UNKNOWN INDICATION
     Dosage: 6 MG, UID/QD, ORAL
     Route: 048
     Dates: start: 20050831, end: 20051031
  5. RAPAMUNE [Suspect]
     Indication: DRUG USE FOR UNKNOWN INDICATION
     Dosage: 6 MG, UID/QD, ORAL
     Route: 048
     Dates: start: 20050831, end: 20051031
  6. ALBUTEROL (SALBUTAMOL SULFATE) [Concomitant]
  7. BACTRIM (TRIMETHOPRIM) [Concomitant]
  8. CALCITRIOL [Concomitant]
  9. CIPRO [Concomitant]
  10. GANCLCLOVIR (GANCICLOVIR) [Concomitant]
  11. LOPRESSOR [Concomitant]
  12. NEXIUM (ESOMPERAZOLE MAGNESIUM) [Concomitant]
  13. LABETALOL HYDROCHLORIDE [Concomitant]
  14. CYTOXAN [Concomitant]
  15. FLOMAX [Concomitant]
  16. LIPITOR [Concomitant]
  17. NEPHROCAPS (FOLIC ACID, VITAMINS NOS) [Concomitant]
  18. PROTONIX [Concomitant]
  19. LABETALOL HCL [Concomitant]
  20. TETRACYCLINE [Concomitant]
  21. ERYTROMYCIN [Concomitant]
  22. THORAZINE [Concomitant]
  23. METOPROLOL TARTRATE [Concomitant]
  24. ROCALTROL [Concomitant]

REACTIONS (4)
  - ABDOMINAL WALL ABSCESS [None]
  - COMPLICATIONS OF TRANSPLANTED KIDNEY [None]
  - OEDEMA PERIPHERAL [None]
  - PERINEPHRIC EFFUSION [None]
